FAERS Safety Report 9249361 (Version 3)
Quarter: 2013Q2

REPORT INFORMATION
  Report Type: Spontaneous
  Country: JP (occurrence: JP)
  Receive Date: 20130423
  Receipt Date: 20130529
  Transmission Date: 20140414
  Serious: Yes (Hospitalization)
  Sender: FDA-Public Use
  Company Number: JP-GLAXOSMITHKLINE-A1020848A

PATIENT
  Age: 67 Year
  Sex: Male

DRUGS (2)
  1. NICORETTE 2 MG [Suspect]
     Indication: SMOKING CESSATION THERAPY
     Route: 002
     Dates: start: 20121022, end: 20130411
  2. VARENICLINE TARTRATE [Suspect]
     Indication: SMOKING CESSATION THERAPY
     Dosage: 1MG TWICE PER DAY
     Route: 048
     Dates: start: 20121022, end: 20130411

REACTIONS (8)
  - Loss of consciousness [Unknown]
  - Metabolic acidosis [Unknown]
  - Renal function test abnormal [Unknown]
  - Status epilepticus [Unknown]
  - Lactic acidosis [Unknown]
  - Hypoxic-ischaemic encephalopathy [Unknown]
  - Drug level increased [Unknown]
  - Sleep apnoea syndrome [Unknown]
